FAERS Safety Report 18257206 (Version 14)
Quarter: 2020Q4

REPORT INFORMATION
  Report Type: Report from Study
  Country: US (occurrence: IL)
  Receive Date: 20200911
  Receipt Date: 20201229
  Transmission Date: 20210113
  Serious: Yes (Hospitalization, Other)
  Sender: FDA-Public Use
  Company Number: IL-ELI_LILLY_AND_COMPANY-IL202008009269

PATIENT
  Age: 76 Year
  Sex: Male
  Weight: 79.7 kg

DRUGS (56)
  1. PEMBROLIZUMAB. [Concomitant]
     Active Substance: PEMBROLIZUMAB
     Dosage: 200 MG, Q3W
     Route: 042
     Dates: start: 20201001
  2. BETAHISTINE [Concomitant]
     Active Substance: BETAHISTINE
     Indication: BALANCE DISORDER
     Dosage: 16 MG, UNKNOWN
     Route: 065
     Dates: start: 200601, end: 20200803
  3. GLUCOMIN [Concomitant]
     Active Substance: METFORMIN HYDROCHLORIDE
     Indication: DIABETES MELLITUS
     Dosage: 850 MG, UNKNOWN
     Route: 065
     Dates: start: 200001, end: 20200823
  4. DEXAMETHASONE. [Concomitant]
     Active Substance: DEXAMETHASONE
     Indication: DECREASED APPETITE
  5. METHADONE HCL [Concomitant]
     Active Substance: METHADONE HYDROCHLORIDE
     Indication: PAIN
  6. CARDILOC [Concomitant]
     Active Substance: BISOPROLOL FUMARATE
     Indication: HYPERTENSION
     Dosage: UNK, UNKNOWN
     Route: 065
  7. TEVACUTAN [Concomitant]
     Indication: WOUND
  8. PEMETREXED. [Suspect]
     Active Substance: PEMETREXED
     Dosage: 500 MG/M2, Q3W
     Route: 042
     Dates: start: 20201001
  9. PEMBROLIZUMAB. [Concomitant]
     Active Substance: PEMBROLIZUMAB
     Dosage: 200 MG, Q3W
     Route: 042
     Dates: start: 20200727, end: 20200727
  10. CARBOPLATIN. [Concomitant]
     Active Substance: CARBOPLATIN
     Dosage: 5 MG/ML/MIN, Q3W
     Route: 042
     Dates: start: 20200727, end: 20200727
  11. CARBOPLATIN. [Concomitant]
     Active Substance: CARBOPLATIN
     Dosage: 5 MG/ML/MIN, Q3W
     Route: 042
     Dates: start: 20201001
  12. ARCOXIA [Concomitant]
     Active Substance: ETORICOXIB
     Indication: PRODUCT USED FOR UNKNOWN INDICATION
     Dosage: 80 MG, UNKNOWN
     Route: 065
     Dates: start: 201401, end: 202009
  13. LOSEC [Concomitant]
     Active Substance: OMEPRAZOLE
     Indication: SUPPLEMENTATION THERAPY
  14. CYMBALTA [Concomitant]
     Active Substance: DULOXETINE HYDROCHLORIDE
     Indication: PAIN
  15. AMLOW [Concomitant]
     Active Substance: AMLODIPINE MALEATE
     Indication: HYPERTENSION
     Dosage: UNK, UNKNOWN
     Route: 065
  16. INSULIN [Concomitant]
     Active Substance: INSULIN NOS
     Indication: DIABETES MELLITUS
     Dosage: UNK, UNKNOWN
     Route: 065
  17. PEMETREXED. [Suspect]
     Active Substance: PEMETREXED
     Dosage: 500 MG/M2, Q3W
     Route: 042
     Dates: start: 20200727, end: 20200727
  18. PEMBROLIZUMAB. [Concomitant]
     Active Substance: PEMBROLIZUMAB
     Indication: NON-SMALL CELL LUNG CANCER METASTATIC
     Dosage: 200 MG, Q3W
     Route: 042
     Dates: start: 20200701, end: 20200701
  19. SEDURAL [Concomitant]
     Indication: PRODUCT USED FOR UNKNOWN INDICATION
     Dosage: 100 MG, UNKNOWN
     Route: 065
     Dates: start: 20200719
  20. MAGNESIUM DIASPORAL 300 [Concomitant]
     Indication: HYPOMAGNESAEMIA
  21. DIPHENHYDRAMINE. [Concomitant]
     Active Substance: DIPHENHYDRAMINE
     Indication: SEDATIVE THERAPY
  22. LOSEC [Concomitant]
     Active Substance: OMEPRAZOLE
     Indication: GASTROOESOPHAGEAL REFLUX DISEASE
  23. AVILAC [LACTULOSE] [Concomitant]
     Indication: CONSTIPATION
  24. PEMETREXED. [Suspect]
     Active Substance: PEMETREXED
     Indication: NON-SMALL CELL LUNG CANCER METASTATIC
     Dosage: 500 MG/M2, Q3W
     Route: 042
     Dates: start: 20200701, end: 20200701
  25. TAMSULIN [Concomitant]
     Indication: BENIGN PROSTATIC HYPERPLASIA
     Dosage: 0.4 MG, UNKNOWN
     Route: 065
     Dates: start: 200501, end: 20200810
  26. OPTALGIN [Concomitant]
     Active Substance: METAMIZOLE
     Indication: PRODUCT USED FOR UNKNOWN INDICATION
     Dosage: 500 MG, UNKNOWN
     Route: 065
     Dates: start: 201201, end: 20200810
  27. HALDOL [Concomitant]
     Active Substance: HALOPERIDOL
     Indication: SEDATION
  28. PERFALGAN [Concomitant]
     Active Substance: ACETAMINOPHEN
     Indication: PAIN
  29. PRAMINAL [METOCLOPRAMIDE HYDROCHLORIDE] [Concomitant]
     Indication: NAUSEA
     Dosage: UNK, UNKNOWN
     Route: 065
  30. PEMBROLIZUMAB. [Concomitant]
     Active Substance: PEMBROLIZUMAB
     Dosage: 200 MG, Q3W
     Route: 042
     Dates: start: 20200908, end: 20200908
  31. CARBOPLATIN. [Concomitant]
     Active Substance: CARBOPLATIN
     Dosage: 5 MG/ML/MIN, Q3W
     Route: 042
     Dates: start: 20200908, end: 20200908
  32. FOLIC ACID. [Concomitant]
     Active Substance: FOLIC ACID
     Indication: PRODUCT USED FOR UNKNOWN INDICATION
     Dosage: 0.4 MG, UNKNOWN
     Route: 065
     Dates: start: 20200615
  33. FENTORA [Concomitant]
     Active Substance: FENTANYL CITRATE
     Indication: PAIN
  34. VALSARTAN. [Concomitant]
     Active Substance: VALSARTAN
     Indication: HYPERTENSION
     Dosage: UNK, UNKNOWN
     Route: 065
  35. ATROPINE SULFATE. [Concomitant]
     Active Substance: ATROPINE SULFATE
     Indication: AIRWAY SECRETION CLEARANCE THERAPY
  36. PEMETREXED. [Suspect]
     Active Substance: PEMETREXED
     Dosage: 500 MG/M2, Q3W
     Route: 042
     Dates: start: 20200908, end: 20200908
  37. CARBOPLATIN. [Concomitant]
     Active Substance: CARBOPLATIN
     Indication: NON-SMALL CELL LUNG CANCER METASTATIC
     Dosage: 5 MG/ML/MIN, Q3W
     Route: 042
     Dates: start: 20200701, end: 20200701
  38. LANTUS [Concomitant]
     Active Substance: INSULIN GLARGINE
     Indication: PRODUCT USED FOR UNKNOWN INDICATION
     Dosage: 100 DOSAGE FORM, UNKNOWN
     Route: 065
     Dates: start: 200501, end: 202009
  39. REPAGLINIDE. [Concomitant]
     Active Substance: REPAGLINIDE
     Indication: DIABETES MELLITUS
     Dosage: 1 MG, UNKNOWN
     Route: 065
     Dates: start: 201601, end: 20200803
  40. ACAMOL [Concomitant]
     Active Substance: ACETAMINOPHEN
     Indication: PRODUCT USED FOR UNKNOWN INDICATION
     Dosage: 500 MG, UNKNOWN
     Route: 065
     Dates: start: 201201
  41. NALOXONE [Concomitant]
     Active Substance: NALOXONE
     Indication: PRODUCT USED FOR UNKNOWN INDICATION
  42. OXYCOD [OXYCODONE HYDROCHLORIDE] [Concomitant]
     Indication: PAIN
  43. LAXADIN [Concomitant]
     Active Substance: BISACODYL
     Indication: CONSTIPATION
     Dosage: UNK, UNKNOWN
     Route: 065
  44. MYDRAMIDE [Concomitant]
     Indication: OPHTHALMOLOGICAL EXAMINATION
     Dosage: UNK, UNKNOWN
     Route: 065
  45. VECTOR [Concomitant]
     Active Substance: VALSARTAN
     Indication: PRODUCT USED FOR UNKNOWN INDICATION
     Dosage: 160 MG, UNKNOWN
     Route: 065
     Dates: start: 201601
  46. JARDIANCE [Concomitant]
     Active Substance: EMPAGLIFLOZIN
     Indication: PRODUCT USED FOR UNKNOWN INDICATION
     Dosage: 10 MG, UNKNOWN
     Route: 065
     Dates: start: 201601, end: 202009
  47. ROSUVASTATIN. [Concomitant]
     Active Substance: ROSUVASTATIN
     Indication: PRODUCT USED FOR UNKNOWN INDICATION
     Dosage: 20 MG, UNKNOWN
     Route: 065
     Dates: start: 201001, end: 202009
  48. ORACORT [TRIAMCINOLONE ACETONIDE] [Concomitant]
     Active Substance: TRIAMCINOLONE ACETONIDE
     Indication: FUNGAL INFECTION
  49. ZYPREXA [Concomitant]
     Active Substance: OLANZAPINE
     Indication: SEDATION
  50. CEFTRIAXONE. [Concomitant]
     Active Substance: CEFTRIAXONE
     Indication: PNEUMONIA ASPIRATION
  51. OLANZAPINE. [Concomitant]
     Active Substance: OLANZAPINE
     Indication: SEDATION
  52. CARTIA XT [Concomitant]
     Active Substance: DILTIAZEM HYDROCHLORIDE
     Indication: HYPERTENSION
     Dosage: 100 MG, UNKNOWN
     Route: 065
     Dates: start: 200501, end: 20200810
  53. MAGNESIUM SULFATE. [Concomitant]
     Active Substance: MAGNESIUM SULFATE
     Indication: HYPOMAGNESAEMIA
  54. TELEBRIX GASTRO [Concomitant]
     Active Substance: MEGLUMINE IOXITHALAMATE
     Indication: COMPUTERISED TOMOGRAM
  55. LOSEC [Concomitant]
     Active Substance: OMEPRAZOLE
     Indication: PROPHYLAXIS
  56. QUETIAPINE FUMARATE. [Concomitant]
     Active Substance: QUETIAPINE FUMARATE
     Indication: DELIRIUM

REACTIONS (6)
  - Herpes zoster [Not Recovered/Not Resolved]
  - Febrile neutropenia [Recovered/Resolved]
  - Cerebrovascular accident [Recovered/Resolved]
  - Pyrexia [Recovered/Resolved]
  - Pulmonary embolism [Not Recovered/Not Resolved]
  - Post herpetic neuralgia [Not Recovered/Not Resolved]

NARRATIVE: CASE EVENT DATE: 20200810
